FAERS Safety Report 9618103 (Version 1)
Quarter: 2013Q4

REPORT INFORMATION
  Report Type: Spontaneous
  Country: US (occurrence: US)
  Receive Date: 20131013
  Receipt Date: 20131013
  Transmission Date: 20140711
  Serious: Yes (Hospitalization)
  Sender: FDA-Public Use
  Company Number: US-009507513-1310USA004024

PATIENT
  Sex: Female

DRUGS (1)
  1. NASONEX [Suspect]
     Dosage: UNK
     Route: 045
     Dates: start: 201304, end: 2013

REACTIONS (3)
  - Nasopharyngeal surgery [Recovering/Resolving]
  - Dysgeusia [Recovering/Resolving]
  - Parosmia [Recovering/Resolving]
